FAERS Safety Report 4372254-1 (Version None)
Quarter: 2004Q2

REPORT INFORMATION
  Report Type: 
  Country: None (occurrence: None)
  Receive Date: 20040602
  Receipt Date: 20040602
  Transmission Date: 20050107
  Serious: No
  Sender: FDA-Public Use
  Company Number: None

PATIENT
  Age: 82 Year
  Sex: Male
  Weight: 86.1834 kg

DRUGS (2)
  1. DEFEROXAMINE (DEFEROXAMINE) [Suspect]
     Indication: BLOOD IRON INCREASED
     Dosage: 1.5 GMS SQ OVER 12 HRS 5 DAYS A WEEK
     Route: 058
     Dates: start: 20040526, end: 20040601
  2. DEFEROXAMINE (DEFEROXAMINE) [Suspect]

REACTIONS (4)
  - ERYTHEMA [None]
  - PAIN [None]
  - PHARMACEUTICAL PRODUCT COMPLAINT [None]
  - SWELLING [None]
